FAERS Safety Report 7033548-4 (Version None)
Quarter: 2010Q4

REPORT INFORMATION
  Report Type: 
  Country: None (occurrence: None)
  Receive Date: 20101007
  Receipt Date: 20100923
  Transmission Date: 20110411
  Serious: Yes (Other)
  Sender: FDA-Public Use
  Company Number: PHFR2010GB04273

PATIENT
  Sex: Female

DRUGS (1)
  1. PAMIDRONATE DISODIUM [Suspect]
     Indication: METASTASES TO BONE
     Dosage: 60MG EVERY FOUR TO EIGHT WEEKS
     Route: 042
     Dates: start: 20010101, end: 20080101

REACTIONS (6)
  - BONE DISORDER [None]
  - BONE LESION [None]
  - GINGIVAL INFECTION [None]
  - OSTEONECROSIS OF JAW [None]
  - STOMATITIS [None]
  - SWELLING [None]
